FAERS Safety Report 4645245-0 (Version None)
Quarter: 2005Q1

REPORT INFORMATION
  Report Type: 
  Country: None (occurrence: None)
  Receive Date: 20050331
  Receipt Date: 20041215
  Transmission Date: 20050727
  Serious: No
  Sender: FDA-Public Use
  Company Number: 04P-163-0280299-00

PATIENT
  Age: 57 Year
  Sex: Female
  Weight: 70.7611 kg

DRUGS (16)
  1. HUMIRA [Suspect]
     Indication: RHEUMATOID ARTHRITIS
     Dosage: 40 MG, 1 IN 2 WK, SUBCUTANEOUS
     Route: 058
     Dates: start: 20031201, end: 20041111
  2. RISEDRONATE SODIUM [Concomitant]
  3. FOLIC ACID [Concomitant]
  4. ESOMEPRAZOLE [Concomitant]
  5. FLUOXETINE HCL [Concomitant]
  6. FEXOFENADINE HYDROCHLORIDE [Concomitant]
  7. DIGOXIN [Concomitant]
  8. RAMIPRIL [Concomitant]
  9. ATORVASTATIN CALCIUM [Concomitant]
  10. CARVEDILOL [Concomitant]
  11. NITROGLYCERIN [Concomitant]
  12. PRANDIN [Concomitant]
  13. INSULIN LISPRO [Concomitant]
  14. INSULIN GLARGINE [Concomitant]
  15. ASPIRIN [Concomitant]
  16. PREDNISONE TAB [Concomitant]

REACTIONS (2)
  - URINARY TRACT INFECTION [None]
  - VAGINAL MYCOSIS [None]
